FAERS Safety Report 12379456 (Version 1)
Quarter: 2016Q2

REPORT INFORMATION
  Report Type: Spontaneous
  Country: US (occurrence: US)
  Receive Date: 20160517
  Receipt Date: 20160517
  Transmission Date: 20160815
  Serious: No
  Sender: FDA-Public Use
  Company Number: US-TEIKOKU PHARMA USA-TPU2015-00292

PATIENT
  Age: 71 Year
  Sex: Female
  Weight: 94.43 kg

DRUGS (5)
  1. LYRICA [Suspect]
     Active Substance: PREGABALIN
     Indication: NEUROPATHY PERIPHERAL
     Dates: start: 2012, end: 2013
  2. LIDODERM [Suspect]
     Active Substance: LIDOCAINE
     Indication: NEUROPATHY PERIPHERAL
     Dosage: 1 TO 2 PATCHES APPLIED TO LOWER BACK
     Route: 061
     Dates: start: 2012
  3. LIDODERM [Suspect]
     Active Substance: LIDOCAINE
     Indication: RADICULOPATHY
     Dosage: 1-3 PATCHES TO SKIN ON SHOULDER
     Dates: start: 20150504
  4. GABAPENTIN. [Suspect]
     Active Substance: GABAPENTIN
     Indication: NEUROPATHY PERIPHERAL
     Dates: start: 2012, end: 2013
  5. LIDODERM [Suspect]
     Active Substance: LIDOCAINE
     Indication: ROTATOR CUFF SYNDROME

REACTIONS (3)
  - Dizziness [Recovered/Resolved]
  - Rotator cuff syndrome [Not Recovered/Not Resolved]
  - Fluid retention [Recovered/Resolved]

NARRATIVE: CASE EVENT DATE: 2012
